FAERS Safety Report 8196418-4 (Version None)
Quarter: 2012Q1

REPORT INFORMATION
  Report Type: 
  Country: None (occurrence: None)
  Receive Date: 20120307
  Receipt Date: 20120307
  Transmission Date: 20120608
  Serious: Yes (Other)
  Sender: FDA-Public Use
  Company Number: None

PATIENT
  Sex: Female

DRUGS (1)
  1. DASATINIB [Suspect]
     Indication: MYELOID LEUKAEMIA
     Dosage: 70MG BID ORAL
     Route: 048
     Dates: start: 20110411

REACTIONS (2)
  - RHINORRHOEA [None]
  - NASAL DISCOMFORT [None]
